FAERS Safety Report 16559669 (Version 2)
Quarter: 2020Q1

REPORT INFORMATION
  Report Type: Spontaneous
  Country: US (occurrence: US)
  Receive Date: 20190711
  Receipt Date: 20200122
  Transmission Date: 20200409
  Serious: No
  Sender: FDA-Public Use
  Company Number: US-PFIZER INC-2019290149

PATIENT
  Age: 79 Year
  Sex: Female

DRUGS (1)
  1. XELJANZ XR [Suspect]
     Active Substance: TOFACITINIB CITRATE
     Indication: RHEUMATOID ARTHRITIS
     Dosage: 11 MG, 1X/DAY (TAKE ONE TABLET BY MOUTH ONCE PER DAY AS DIRECTED)
     Route: 048
     Dates: start: 20181213

REACTIONS (6)
  - Sinus disorder [Not Recovered/Not Resolved]
  - Pain in extremity [Unknown]
  - Fatigue [Unknown]
  - Muscle spasms [Unknown]
  - Throat irritation [Not Recovered/Not Resolved]
  - Sensitivity to weather change [Unknown]
